FAERS Safety Report 9165104 (Version 2)
Quarter: 2013Q1

REPORT INFORMATION
  Report Type: Report from Study
  Country: US (occurrence: US)
  Receive Date: 20130315
  Receipt Date: 20130320
  Transmission Date: 20140127
  Serious: Yes (Other)
  Sender: FDA-Public Use
  Company Number: US-VERTEX PHARMACEUTICALS INC.-2013-003588

PATIENT
  Sex: Male
  Weight: 84 kg

DRUGS (10)
  1. VX-950 (TELAPREVIR) [Suspect]
     Indication: HEPATITIS C
     Dosage: 750 MG, TID
     Route: 048
     Dates: start: 201301
  2. PEGASYS [Suspect]
     Indication: HEPATITIS C
     Dosage: 180 ?G,WEEKLY
     Route: 058
     Dates: start: 201301
  3. RIBASPHERE [Suspect]
     Indication: HEPATITIS C
     Dosage: 600 MG, BID
     Route: 048
     Dates: start: 201301
  4. ZOCOR [Concomitant]
     Dosage: 80 MG, QD
  5. XANAX [Concomitant]
     Dosage: 2 MG, QD
  6. NORVASC [Concomitant]
     Dosage: 10 MG, QD
  7. LISINOPRIL [Concomitant]
     Dosage: 40 MG, QD
  8. METOPROLOL SUCCINATE [Concomitant]
     Dosage: 25 MG, QD
  9. MS CONTIN [Concomitant]
     Dosage: 15 MG, BID
  10. UNISOM [Concomitant]
     Dosage: 25 MG, QD

REACTIONS (3)
  - Transfusion [Unknown]
  - Asthenia [Unknown]
  - Pruritus [Unknown]
